FAERS Safety Report 4992707-2 (Version None)
Quarter: 2006Q1

REPORT INFORMATION
  Report Type: 
  Country: None (occurrence: None)
  Receive Date: 20060313
  Receipt Date: 20060104
  Transmission Date: 20060701
  Serious: No
  Sender: FDA-Public Use
  Company Number: 2006-BP-00102BP

PATIENT
  Age: 71 Year
  Sex: Male

DRUGS (8)
  1. SPIRIVA [Suspect]
     Indication: BRONCHITIS CHRONIC
     Dosage: 18 MCG (18 MCG, 1 QD), IH
     Route: 055
     Dates: start: 20051101, end: 20060104
  2. SPIRIVA [Suspect]
  3. NYASPAN [Concomitant]
  4. METFORMIN [Concomitant]
  5. ZESTRIL [Concomitant]
  6. FLOMAX [Concomitant]
  7. ASPIRIN [Concomitant]
  8. GLYBURIDE [Concomitant]

REACTIONS (4)
  - ARTHRALGIA [None]
  - DRY MOUTH [None]
  - NASAL DRYNESS [None]
  - PAIN IN EXTREMITY [None]
